FAERS Safety Report 17574417 (Version 1)
Quarter: 2020Q1

REPORT INFORMATION
  Report Type: Spontaneous
  Country: US (occurrence: US)
  Receive Date: 20200324
  Receipt Date: 20200324
  Transmission Date: 20200409
  Serious: No
  Sender: FDA-Public Use
  Company Number: US-AUROBINDO-AUR-APL-2019-025617

PATIENT
  Sex: Female

DRUGS (1)
  1. GABAPENTIN CAPSULES [Suspect]
     Active Substance: GABAPENTIN
     Indication: NECK PAIN
     Dosage: 300 MILLIGRAM, ONCE A DAY, AT NIGHT
     Route: 065

REACTIONS (7)
  - Abdominal pain lower [Unknown]
  - Dyschezia [Unknown]
  - Weight decreased [Unknown]
  - Asthenia [Unknown]
  - Hernia [Unknown]
  - Flatulence [Unknown]
  - Abdominal pain upper [Unknown]

NARRATIVE: CASE EVENT DATE: 20190207
